FAERS Safety Report 16569208 (Version 2)
Quarter: 2019Q3

REPORT INFORMATION
  Report Type: Report from Study
  Country: PT (occurrence: PT)
  Receive Date: 20190714
  Receipt Date: 20190719
  Transmission Date: 20191004
  Serious: Yes (Hospitalization)
  Sender: FDA-Public Use
  Company Number: PT-CELLTRION INC.-2019PT022631

PATIENT

DRUGS (23)
  1. CANDESARTAN. [Concomitant]
     Active Substance: CANDESARTAN
     Indication: HYPERTENSION
     Dosage: 8 MG, ONCE A DAY
     Route: 048
     Dates: start: 2016, end: 20170318
  2. HYDROCORTISONE. [Concomitant]
     Active Substance: HYDROCORTISONE
     Indication: ABDOMINAL PAIN
     Dosage: UNKNOWN
     Route: 042
     Dates: start: 20170318, end: 2017
  3. REMSIMA [Suspect]
     Active Substance: INFLIXIMAB
     Dosage: 800 MG (WEIGHT: 80KG)
     Route: 042
     Dates: start: 20180423, end: 20180423
  4. REMSIMA [Suspect]
     Active Substance: INFLIXIMAB
     Dosage: 780 MG (WEIGHT: 78KG)
     Route: 042
     Dates: start: 20170828
  5. REMSIMA [Suspect]
     Active Substance: INFLIXIMAB
     Dosage: 780 MG (WEIGHT: 78KG)
     Route: 042
     Dates: start: 20171009, end: 20171009
  6. REMSIMA [Suspect]
     Active Substance: INFLIXIMAB
     Dosage: 820 MG (WEIGHT: 82KG)
     Route: 042
     Dates: start: 20171120, end: 20171120
  7. REMSIMA [Suspect]
     Active Substance: INFLIXIMAB
     Dosage: 780 MG (WEIGHT: 78KG)
     Route: 042
     Dates: start: 20180102, end: 20180102
  8. REMSIMA [Suspect]
     Active Substance: INFLIXIMAB
     Dosage: 800 MG (WEIGHT: 80KG)
     Route: 042
     Dates: start: 20180702, end: 20180702
  9. REMSIMA [Suspect]
     Active Substance: INFLIXIMAB
     Dosage: 800 MG (WEIGHT: 80KG)
     Route: 042
     Dates: start: 20181213
  10. PANTOPRAZOLE [Concomitant]
     Active Substance: PANTOPRAZOLE
     Indication: INFLAMMATORY BOWEL DISEASE
     Dosage: 40 MG, ONCE A DAY
     Route: 048
     Dates: start: 201001, end: 20170318
  11. PREDNISOLONE. [Concomitant]
     Active Substance: PREDNISOLONE
     Dosage: 20 MG, ONCE A DAY
     Route: 048
     Dates: start: 20170329
  12. REMSIMA [Suspect]
     Active Substance: INFLIXIMAB
     Dosage: 780 MG (WEIGHT: 78KG)
     Route: 042
     Dates: start: 20180313, end: 20180313
  13. REMSIMA [Suspect]
     Active Substance: INFLIXIMAB
     Dosage: 830 MG (WEIGHT: 83KG)
     Route: 042
     Dates: start: 20181008, end: 20181008
  14. CANDESARTAN. [Concomitant]
     Active Substance: CANDESARTAN
     Dosage: 16 MG, ONCE A DAY
     Route: 048
     Dates: start: 20170329, end: 20170330
  15. CANDESARTAN. [Concomitant]
     Active Substance: CANDESARTAN
     Dosage: 8 MG, ONCE A DAY
     Route: 048
     Dates: start: 20170330
  16. HYDROXYZINE [Concomitant]
     Active Substance: HYDROXYZINE HYDROCHLORIDE
     Indication: ABDOMINAL PAIN
     Dosage: 25 MG, FOUR TIMES A DAY
     Route: 048
     Dates: start: 20170322, end: 20170330
  17. REMSIMA [Suspect]
     Active Substance: INFLIXIMAB
     Indication: CROHN^S DISEASE
     Dosage: 750 MG (WEIGHT: 75KG)
     Route: 042
     Dates: start: 20170717
  18. REMSIMA [Suspect]
     Active Substance: INFLIXIMAB
     Dosage: 780 MG (WEIGHT: 78KG)
     Route: 042
     Dates: start: 20180813, end: 20180813
  19. PANTOPRAZOLE [Concomitant]
     Active Substance: PANTOPRAZOLE
     Dosage: 40 MG, ONCE A DAY
     Route: 048
     Dates: start: 20170330
  20. CANDESARTAN. [Concomitant]
     Active Substance: CANDESARTAN
     Dosage: 20 MG, ONCE A DAY
     Route: 048
     Dates: start: 20170329, end: 20170329
  21. SULFASALAZINE. [Concomitant]
     Active Substance: SULFASALAZINE
     Indication: CROHN^S DISEASE
     Dosage: 1000 MG, THREE TIMES A DAY
     Route: 048
  22. REMSIMA [Suspect]
     Active Substance: INFLIXIMAB
     Dosage: 800 MG (WEIGHT: 80KG)
     Route: 042
     Dates: start: 20180604, end: 20180604
  23. PREDNISOLONE. [Concomitant]
     Active Substance: PREDNISOLONE
     Indication: ABDOMINAL PAIN
     Dosage: 40 MG, ONCE A DAY
     Route: 048
     Dates: start: 20170322, end: 20170329

REACTIONS (1)
  - Anal abscess [Recovered/Resolved]

NARRATIVE: CASE EVENT DATE: 201901
